FAERS Safety Report 4642237-2 (Version None)
Quarter: 2005Q2

REPORT INFORMATION
  Report Type: 
  Country: None (occurrence: None)
  Receive Date: 20050422
  Receipt Date: 20040301
  Transmission Date: 20051028
  Serious: Yes (Hospitalization)
  Sender: FDA-Public Use
  Company Number: FR-RB-563-2004

PATIENT
  Age: 31 Year
  Sex: Female

DRUGS (1)
  1. BUPRENORPHINE HCL [Suspect]
     Indication: DRUG DEPENDENCE
     Route: 042
     Dates: end: 20030925

REACTIONS (6)
  - ASCITES [None]
  - BLOOD AMYLASE INCREASED [None]
  - INTENTIONAL MISUSE [None]
  - LIPASE INCREASED [None]
  - PANCREATITIS ACUTE [None]
  - SINUS TACHYCARDIA [None]
